FAERS Safety Report 5899731-6 (Version None)
Quarter: 2008Q3

REPORT INFORMATION
  Report Type: 
  Country: None (occurrence: None)
  Receive Date: 20080926
  Receipt Date: 20080917
  Transmission Date: 20090109
  Serious: Yes (Other)
  Sender: FDA-Public Use
  Company Number: PT-BAYER-200826865GPV

PATIENT
  Age: 24 Year
  Sex: Female

DRUGS (1)
  1. YASMIN [Suspect]
     Indication: OVARIAN CYST
     Dates: start: 20070701, end: 20080601

REACTIONS (3)
  - DEPRESSED MOOD [None]
  - EPILEPSY [None]
  - FATIGUE [None]
